FAERS Safety Report 7233891-X (Version None)
Quarter: 2011Q1

REPORT INFORMATION
  Report Type: 
  Country: None (occurrence: None)
  Receive Date: 20110107
  Receipt Date: 20101222
  Transmission Date: 20110831
  Serious: Yes (Hospitalization)
  Sender: FDA-Public Use
  Company Number: UTC-003639

PATIENT
  Age: 37 Year
  Sex: Female

DRUGS (3)
  1. REVATIO [Concomitant]
  2. TYVASO [Suspect]
     Indication: PULMONARY ARTERIAL HYPERTENSION
     Dosage: (18 MCG, 3-4 TIMES A DAY), INHALATION
     Route: 055
     Dates: start: 20101215, end: 20101220
  3. LETAIRIS (AMBRISENTAN) [Concomitant]

REACTIONS (3)
  - CHEST DISCOMFORT [None]
  - ANAEMIA [None]
  - LOSS OF CONSCIOUSNESS [None]
